FAERS Safety Report 24783818 (Version 1)
Quarter: 2024Q4

REPORT INFORMATION
  Report Type: Report from Study
  Country: US (occurrence: US)
  Receive Date: 20241227
  Receipt Date: 20241227
  Transmission Date: 20250115
  Serious: Yes (Hospitalization, Other)
  Sender: ABBVIE
  Company Number: US-ABBVIE-5992942

PATIENT
  Age: 63 Year
  Sex: Male
  Weight: 89.811 kg

DRUGS (4)
  1. HUMIRA [Suspect]
     Active Substance: ADALIMUMAB
     Indication: Rheumatoid arthritis
     Dosage: FORM STRENGTH: 40 MILLIGRAM
     Route: 058
     Dates: start: 2018, end: 202405
  2. HUMIRA [Suspect]
     Active Substance: ADALIMUMAB
     Dosage: FORM STRENGTH: 40 MILLIGRAM
     Route: 058
     Dates: start: 202407
  3. HYRIMOZ [Suspect]
     Active Substance: ADALIMUMAB-ADAZ
     Indication: Rheumatoid arthritis
     Route: 065
     Dates: start: 202405, end: 202406
  4. FUROSEMIDE [Suspect]
     Active Substance: FUROSEMIDE
     Indication: Pain
     Route: 065

REACTIONS (7)
  - Hip arthroplasty [Recovered/Resolved]
  - Arthralgia [Recovering/Resolving]
  - Rheumatoid arthritis [Recovered/Resolved]
  - Rash [Recovered/Resolved]
  - Fungal skin infection [Recovered/Resolved]
  - Psoriasis [Unknown]
  - Arthralgia [Recovered/Resolved]

NARRATIVE: CASE EVENT DATE: 20230501
